FAERS Safety Report 7579480-9 (Version None)
Quarter: 2011Q2

REPORT INFORMATION
  Report Type: 
  Country: None (occurrence: None)
  Receive Date: 20110629
  Receipt Date: 20110110
  Transmission Date: 20111010
  Serious: Yes (Hospitalization, Other)
  Sender: FDA-Public Use
  Company Number: US-BAYER-200941162NA

PATIENT
  Age: 65 Year
  Sex: Male
  Weight: 96.599 kg

DRUGS (33)
  1. ZESTRIL [Concomitant]
     Dosage: UNK
     Dates: start: 20030101
  2. GLUCOTROL XL [Concomitant]
     Dosage: 10 MG/TWICE A DAY
     Route: 048
  3. HEPARIN [Concomitant]
     Dosage: UNK, IV AND VESSEL FLUSH
     Route: 042
     Dates: start: 20050722
  4. VYTORIN [Concomitant]
     Dosage: 10/40 MG/DAILY
     Route: 048
  5. COREG [Concomitant]
     Dosage: 3.125 MG, DAILY
     Route: 048
  6. LEVOPHED [Concomitant]
     Dosage: UNK
     Dates: start: 20050722
  7. PROTAMINE SULFATE [Concomitant]
     Dosage: UNK
     Route: 042
     Dates: start: 20050722
  8. ANCEF [Concomitant]
     Dosage: 1 G, UNK
     Route: 042
     Dates: start: 20050722
  9. LISINOPRIL [Concomitant]
     Dosage: UNK
     Dates: start: 20030101
  10. LABETALOL HCL [Concomitant]
     Dosage: 20 MG, TWICE A DAY
     Route: 048
  11. EPINEPHRINE [Concomitant]
     Dosage: UNK
     Route: 042
     Dates: start: 20050722
  12. INSULIN [Concomitant]
     Dosage: UNK
     Dates: start: 20050719
  13. PROPOFOL [Concomitant]
     Dosage: UNK
     Route: 042
     Dates: start: 20050722
  14. OPTIRAY 300 [Concomitant]
     Indication: CATHETERISATION CARDIAC
     Dosage: UNK
     Dates: start: 20050221
  15. DIOVAN [Concomitant]
     Dosage: 160 MG, DAILY
     Route: 048
  16. VERPAMIL HCL [Concomitant]
     Dosage: UNK, VESSEL FLUSH
     Dates: start: 20050722
  17. PAPAVERINE [Concomitant]
     Dosage: UNK, VESSEL FLUSH
     Dates: start: 20050722
  18. ISOVUE-128 [Concomitant]
     Indication: CATHETERISATION CARDIAC
     Dosage: UNK,
     Dates: start: 19960725
  19. OMNIPAQUE 140 [Concomitant]
     Indication: CATHETERISATION CARDIAC
     Dosage: UNK
     Dates: start: 20031218
  20. TRASYLOL [Suspect]
     Indication: CORONARY ARTERY BYPASS
     Dosage: UNK, APROTININ FULL DOSE PROTOCOL
     Route: 042
     Dates: start: 20050722, end: 20050722
  21. ATORVASTATIN [Concomitant]
     Dosage: UNK
     Dates: start: 20050718
  22. TEMAZEPAM [Concomitant]
     Dosage: UNK
     Dates: start: 20050721
  23. GLUCOPHAGE XR [Concomitant]
     Dosage: 500 MG, DAILY
     Route: 048
  24. ACETYLSALICYLIC ACID SRT [Concomitant]
     Dosage: 81 MG, DAILY
     Route: 048
     Dates: start: 20020101
  25. LIPITOR [Concomitant]
  26. LEXAPRO [Concomitant]
     Dosage: 10 MG, DAILY
     Route: 048
  27. ZETIA [Concomitant]
     Dosage: 10 MG, DAILY
     Route: 048
  28. PRIMACOR [Concomitant]
     Dosage: UNK
     Route: 042
     Dates: start: 20050722
  29. LIDOCAINE [Concomitant]
     Dosage: UNK,
     Route: 042
     Dates: start: 20050722
  30. TRASYLOL [Suspect]
     Indication: AORTIC VALVE REPLACEMENT
  31. PLAVIX [Concomitant]
     Dosage: 75 MG, DAILY
  32. LANOXIN [Concomitant]
     Dosage: 0.25 MG, DAILY
     Route: 048
  33. SENSORCAINE-MPF [BUPIVACAINE HYDROCHLORIDE] [Concomitant]
     Dosage: UNK, PAIN PUMP
     Dates: start: 20050722

REACTIONS (12)
  - RENAL INJURY [None]
  - STRESS [None]
  - EMOTIONAL DISTRESS [None]
  - ANXIETY [None]
  - PAIN [None]
  - UNEVALUABLE EVENT [None]
  - ANHEDONIA [None]
  - RENAL FAILURE [None]
  - RENAL IMPAIRMENT [None]
  - EMOTIONAL DISORDER [None]
  - FEAR [None]
  - INJURY [None]
